FAERS Safety Report 9429204 (Version 1)
Quarter: 2013Q3

REPORT INFORMATION
  Report Type: Spontaneous
  Country: FR (occurrence: FR)
  Receive Date: 20130730
  Receipt Date: 20130730
  Transmission Date: 20140515
  Serious: Yes (Disabling, Other)
  Sender: FDA-Public Use
  Company Number: FR-TEVA-421393ISR

PATIENT
  Age: 61 Year
  Sex: Female

DRUGS (4)
  1. FUROSEMIDE TEVA 40 MG SCORED TABLET [Suspect]
     Dosage: 40 MILLIGRAM DAILY;
     Route: 048
     Dates: start: 2002, end: 20130608
  2. SPIRONOLACTONE [Suspect]
     Dosage: 50 MILLIGRAM DAILY;
     Route: 048
  3. PAROXETINE [Suspect]
     Dosage: 1 DOSAGE FORMS DAILY;
     Route: 048
  4. AVLOCARDYL 40 MG, SCORED TABLET [Suspect]
     Dosage: 30 MILLIGRAM DAILY;
     Route: 048

REACTIONS (2)
  - Fall [Recovered/Resolved]
  - Wrist fracture [Recovered/Resolved with Sequelae]
